FAERS Safety Report 5528743-7 (Version None)
Quarter: 2007Q4

REPORT INFORMATION
  Report Type: 
  Country: None (occurrence: None)
  Receive Date: 20071129
  Receipt Date: 20071119
  Transmission Date: 20080405
  Serious: Yes (Hospitalization, Other)
  Sender: FDA-Public Use
  Company Number: US-ASTRAZENECA-2007UW24985

PATIENT
  Age: 58 Year
  Sex: Male
  Weight: 103.6 kg

DRUGS (3)
  1. PRILOSEC OTC [Suspect]
     Indication: GASTROOESOPHAGEAL REFLUX DISEASE
     Route: 048
     Dates: start: 20071001, end: 20071013
  2. AVANDIA [Concomitant]
     Indication: TYPE 2 DIABETES MELLITUS
  3. VITAMIN [Concomitant]

REACTIONS (9)
  - ABDOMINAL PAIN UPPER [None]
  - ANOREXIA [None]
  - CHROMATURIA [None]
  - DIARRHOEA [None]
  - FATIGUE [None]
  - FLATULENCE [None]
  - HEPATIC LESION [None]
  - JAUNDICE [None]
  - WEIGHT DECREASED [None]
